FAERS Safety Report 5517353-3 (Version None)
Quarter: 2007Q4

REPORT INFORMATION
  Report Type: 
  Country: None (occurrence: None)
  Receive Date: 20071109
  Receipt Date: 20071026
  Transmission Date: 20080405
  Serious: Yes (Disabling)
  Sender: FDA-Public Use
  Company Number: 2007S1011116

PATIENT
  Age: 67 Year
  Sex: Female
  Weight: 92 kg

DRUGS (4)
  1. BISOPROLOL FUMARATE [Suspect]
     Indication: HYPERTENSION
     Dosage: 2.5 MG; ORAL
     Route: 048
     Dates: start: 20070404, end: 20070503
  2. ASPIRIN [Concomitant]
  3. BENDROFLUMETHIAZIDE [Concomitant]
  4. COZAAR [Concomitant]

REACTIONS (1)
  - DEAFNESS UNILATERAL [None]
